FAERS Safety Report 5450914-9 (Version None)
Quarter: 2007Q3

REPORT INFORMATION
  Report Type: 
  Country: None (occurrence: None)
  Receive Date: 20070911
  Receipt Date: 20070904
  Transmission Date: 20080115
  Serious: Yes (Hospitalization, Other)
  Sender: FDA-Public Use
  Company Number: 2005-01411

PATIENT
  Age: 63 Year
  Sex: Male
  Weight: 77.1 kg

DRUGS (5)
  1. VELCADE [Suspect]
     Indication: MULTIPLE MYELOMA
     Dosage: 1.00 MG/M2, IV BOLUS
     Route: 040
     Dates: start: 20050606
  2. ASPIRIN [Concomitant]
  3. VITAMIN B6 [Concomitant]
  4. ESCITALOPRAM OXALATE [Concomitant]
  5. IBUPROFEN [Concomitant]

REACTIONS (10)
  - ANAEMIA [None]
  - BONE MARROW FAILURE [None]
  - GALLBLADDER DISORDER [None]
  - HYPOKALAEMIA [None]
  - HYPONATRAEMIA [None]
  - ILEUS [None]
  - MALIGNANT HYPERTENSION [None]
  - PANCREATITIS ACUTE [None]
  - RENAL FAILURE [None]
  - THROMBOCYTOPENIA [None]
